FAERS Safety Report 6203287-8 (Version None)
Quarter: 2009Q2

REPORT INFORMATION
  Report Type: 
  Country: None (occurrence: None)
  Receive Date: 20090527
  Receipt Date: 20090515
  Transmission Date: 20091009
  Serious: Yes (Other)
  Sender: FDA-Public Use
  Company Number: PHHY2009IT17875

PATIENT
  Sex: Male

DRUGS (1)
  1. RITALIN [Suspect]
     Dosage: 20 MG/DAY
     Route: 048
     Dates: start: 20090218, end: 20090222

REACTIONS (6)
  - AGITATION [None]
  - BLOOD PRESSURE INCREASED [None]
  - ERYTHEMA [None]
  - FLUSHING [None]
  - TACHYCARDIA [None]
  - TACHYPNOEA [None]
